FAERS Safety Report 15659383 (Version 4)
Quarter: 2021Q1

REPORT INFORMATION
  Report Type: Spontaneous
  Country: IE (occurrence: IE)
  Receive Date: 20181127
  Receipt Date: 20210201
  Transmission Date: 20210419
  Serious: Yes (Life-Threatening, Hospitalization)
  Sender: FDA-Public Use
  Company Number: IE-TEVA-2018-IE-978957

PATIENT
  Age: 68 Year
  Sex: Male

DRUGS (5)
  1. ATORVASTATIN TEVA [Concomitant]
     Active Substance: ATORVASTATIN
     Indication: BLOOD CHOLESTEROL INCREASED
     Dosage: 20 MG
     Route: 048
     Dates: start: 20180303, end: 20180324
  2. ATORVASTATIN TEVA [Concomitant]
     Active Substance: ATORVASTATIN
     Indication: HYPERLIPIDAEMIA
  3. DELTACORTRIL ENTERIC [Concomitant]
     Indication: INFLAMMATION
     Dosage: 5 MG X 6 TABLETS, UNIT DOSE : 5 MG
     Dates: start: 20180306, end: 20180310
  4. ASPIRIN (GENERIC) [Concomitant]
     Active Substance: ASPIRIN
     Indication: PULMONARY EMBOLISM
     Dosage: 75 MG
     Route: 048
  5. CLARITHROMYCIN TEVA [Suspect]
     Active Substance: CLARITHROMYCIN
     Indication: LOWER RESPIRATORY TRACT INFECTION
     Dosage: 500 MG
     Route: 048
     Dates: start: 20180309, end: 20180316

REACTIONS (6)
  - Respiratory arrest [Recovered/Resolved]
  - Pallor [Recovered/Resolved]
  - Loss of consciousness [Recovered/Resolved]
  - Pulse absent [Recovered/Resolved]
  - Cardiac arrest [Recovered/Resolved]
  - Long QT syndrome [Recovered/Resolved]

NARRATIVE: CASE EVENT DATE: 20180312
